FAERS Safety Report 10382937 (Version 1)
Quarter: 2014Q3

REPORT INFORMATION
  Report Type: Spontaneous
  Country: US (occurrence: US)
  Receive Date: 20140813
  Receipt Date: 20140813
  Transmission Date: 20150326
  Serious: Yes (Hospitalization)
  Sender: FDA-Public Use
  Company Number: US-SA-2014SA053804

PATIENT
  Age: 61 Year
  Sex: Male
  Weight: 81.6 kg

DRUGS (18)
  1. FABRAZYME [Suspect]
     Active Substance: AGALSIDASE BETA
     Indication: FABRY^S DISEASE
     Dosage: 80 MG EVERY OTHER DAY
     Route: 042
     Dates: start: 20100208
  2. GABAPENTIN. [Concomitant]
     Active Substance: GABAPENTIN
  3. FAMOTIDINE. [Concomitant]
     Active Substance: FAMOTIDINE
  4. DEXAMETHASONE. [Concomitant]
     Active Substance: DEXAMETHASONE
  5. CALCIUM [Concomitant]
     Active Substance: CALCIUM
  6. MYCOPHENOLATE SODIUM [Concomitant]
     Active Substance: MYCOPHENOLATE SODIUM
  7. TEGRETOL [Concomitant]
     Active Substance: CARBAMAZEPINE
  8. LOVASTATIN. [Concomitant]
     Active Substance: LOVASTATIN
  9. COREG [Concomitant]
     Active Substance: CARVEDILOL
  10. WARFARIN [Concomitant]
     Active Substance: WARFARIN
  11. BACTRIM [Concomitant]
     Active Substance: SULFAMETHOXAZOLE\TRIMETHOPRIM
  12. NEORAL [Concomitant]
     Active Substance: CYCLOSPORINE
  13. FABRAZYME [Suspect]
     Active Substance: AGALSIDASE BETA
     Indication: FABRY^S DISEASE
     Dosage: 80 MG EVERY OTHER DAY
     Route: 042
     Dates: start: 20100208
  14. PREDNISONE. [Concomitant]
     Active Substance: PREDNISONE
  15. VICODIN [Concomitant]
     Active Substance: ACETAMINOPHEN\HYDROCODONE BITARTRATE
  16. DIPHENHYDRAMINE [Concomitant]
     Active Substance: DIPHENHYDRAMINE
  17. SODIUM CHLORIDE. [Concomitant]
     Active Substance: SODIUM CHLORIDE
  18. EPIPEN [Concomitant]
     Active Substance: EPINEPHRINE

REACTIONS (1)
  - Chest pain [Unknown]
